FAERS Safety Report 9426605 (Version 1)
Quarter: 2013Q3

REPORT INFORMATION
  Report Type: Spontaneous
  Country: US (occurrence: US)
  Receive Date: 20130730
  Receipt Date: 20130730
  Transmission Date: 20140515
  Serious: No
  Sender: FDA-Public Use
  Company Number: US-PFIZER INC-2013218183

PATIENT
  Age: 41 Year
  Sex: Female
  Weight: 77.1 kg

DRUGS (3)
  1. GENOTROPIN MQ [Suspect]
     Indication: POSTPARTUM HYPOPITUITARISM
     Dosage: 0.2 MG, 1X/DAY
     Dates: start: 20130723
  2. GENOTROPIN MQ [Suspect]
     Indication: GROWTH HORMONE DEFICIENCY
  3. NASONEX [Concomitant]
     Indication: SEASONAL ALLERGY
     Dosage: UNK

REACTIONS (5)
  - Sleep disorder [Unknown]
  - Restless legs syndrome [Unknown]
  - Pollakiuria [Unknown]
  - Thirst [Unknown]
  - Abdominal pain [Unknown]
